FAERS Safety Report 8518415-9 (Version None)
Quarter: 2012Q3

REPORT INFORMATION
  Report Type: 
  Country: None (occurrence: None)
  Receive Date: 20120718
  Receipt Date: 20120215
  Transmission Date: 20120928
  Serious: Yes (Other)
  Sender: FDA-Public Use
  Company Number: US-BRISTOL-MYERS SQUIBB COMPANY-16401325

PATIENT
  Age: 76 Year
  Sex: Male
  Weight: 51 kg

DRUGS (1)
  1. COUMADIN [Suspect]
     Indication: PULMONARY THROMBOSIS
     Dates: start: 20120207

REACTIONS (3)
  - INTERNATIONAL NORMALISED RATIO INCREASED [None]
  - NASOPHARYNGITIS [None]
  - DECREASED APPETITE [None]
